FAERS Safety Report 8606059-X (Version None)
Quarter: 2012Q3

REPORT INFORMATION
  Report Type: 
  Country: None (occurrence: None)
  Receive Date: 20120820
  Receipt Date: 20120809
  Transmission Date: 20120928
  Serious: Yes (Hospitalization)
  Sender: FDA-Public Use
  Company Number: US-ROCHE-1100153

PATIENT
  Age: 45 Year
  Sex: Female
  Weight: 208.84 kg

DRUGS (7)
  1. LYRICA [Concomitant]
  2. KLONOPIN [Suspect]
     Indication: PRODUCT USED FOR UNKNOWN INDICATION
  3. CELEXA [Concomitant]
  4. LATUDA [Suspect]
     Indication: MOOD SWINGS
     Route: 048
     Dates: start: 20120601, end: 20120701
  5. LATUDA [Suspect]
     Indication: PARANOIA
     Route: 048
     Dates: start: 20120701
  6. ABILIFY [Concomitant]
     Dates: end: 20120601
  7. INSULIN [Concomitant]

REACTIONS (4)
  - THYROID FUNCTION TEST ABNORMAL [None]
  - SOMNOLENCE [None]
  - ARRHYTHMIA [None]
  - SEXUAL DYSFUNCTION [None]
